FAERS Safety Report 14948701 (Version 1)
Quarter: 2018Q2

REPORT INFORMATION
  Report Type: Spontaneous
  Country: US (occurrence: US)
  Receive Date: 20180529
  Receipt Date: 20180529
  Transmission Date: 20180711
  Serious: Yes (Death, Other)
  Sender: FDA-Public Use
  Company Number: US-TAKEDA-2018TUS015713

PATIENT
  Age: 15 Year
  Sex: Female

DRUGS (1)
  1. PONATINIB [Suspect]
     Active Substance: PONATINIB
     Indication: ACUTE LYMPHOCYTIC LEUKAEMIA
     Dosage: UNK
     Route: 065

REACTIONS (6)
  - Pericardial effusion [Unknown]
  - Infection [Fatal]
  - Pleural effusion [Unknown]
  - Off label use [Unknown]
  - Fluid retention [Unknown]
  - Oedema peripheral [Unknown]
